FAERS Safety Report 14821829 (Version 1)
Quarter: 2018Q2

REPORT INFORMATION
  Report Type: Spontaneous
  Country: ZA (occurrence: ZA)
  Receive Date: 20180427
  Receipt Date: 20180427
  Transmission Date: 20180711
  Serious: Yes (Hospitalization)
  Sender: FDA-Public Use
  Company Number: ZA-009507513-1804ZAF011215

PATIENT
  Sex: Male

DRUGS (3)
  1. SYNALEVE (ACETAMINOPHEN (+) CAFFEINE (+) CODEINE PHOSPHATE (+) MEPROBA [Suspect]
     Active Substance: ACETAMINOPHEN\CAFFEINE\CODEINE PHOSPHATE\MEPROBAMATE
     Dosage: UNK, PRN
  2. CUBICIN [Suspect]
     Active Substance: DAPTOMYCIN
     Indication: STAPHYLOCOCCAL INFECTION
     Dosage: 500 MG, DAILY
     Route: 042
  3. ECOTRIN [Suspect]
     Active Substance: ASPIRIN

REACTIONS (3)
  - Lethargy [Unknown]
  - Somnolence [Unknown]
  - Nausea [Unknown]
